FAERS Safety Report 7510041-3 (Version None)
Quarter: 2011Q2

REPORT INFORMATION
  Report Type: 
  Country: None (occurrence: None)
  Receive Date: 20110527
  Receipt Date: 20110201
  Transmission Date: 20111010
  Serious: No
  Sender: FDA-Public Use
  Company Number: B0697883B

PATIENT
  Sex: Female

DRUGS (1)
  1. RELENZA [Suspect]
     Indication: INFLUENZA
     Dosage: 20MG PER DAY
     Route: 055
     Dates: start: 20110126

REACTIONS (1)
  - DRUG EXPOSURE VIA BREAST MILK [None]
